FAERS Safety Report 25040723 (Version 1)
Quarter: 2025Q1

REPORT INFORMATION
  Report Type: Spontaneous
  Country: US (occurrence: None)
  Receive Date: 20250304
  Receipt Date: 20250304
  Transmission Date: 20250409
  Serious: Yes (Hospitalization)
  Sender: FDA-CTU
  Company Number: None

PATIENT
  Sex: Female

DRUGS (3)
  1. SILDENAFIL CITRATE [Suspect]
     Active Substance: SILDENAFIL CITRATE
     Indication: Pulmonary arterial hypertension
     Dosage: FREQUENCY : TWICE A DAY;?
     Route: 048
     Dates: start: 202501
  2. TYVASO [Suspect]
     Active Substance: TREPROSTINIL
  3. TYVASO [Concomitant]
     Active Substance: TREPROSTINIL

REACTIONS (4)
  - Throat irritation [None]
  - Cough [None]
  - Pneumothorax [None]
  - Obstructive airways disorder [None]
